FAERS Safety Report 5847176-7 (Version None)
Quarter: 2008Q3

REPORT INFORMATION
  Report Type: 
  Country: None (occurrence: None)
  Receive Date: 20080815
  Receipt Date: 20080808
  Transmission Date: 20090109
  Serious: Yes (Other)
  Sender: FDA-Public Use
  Company Number: PHHY2008JP16418

PATIENT
  Age: 29 Year
  Sex: Male

DRUGS (8)
  1. NEORAL [Suspect]
     Indication: HEPATITIS B
  2. METHYLPREDNISOLONE 16MG TAB [Concomitant]
  3. SULFAMETHOXAZOLE AND TRIMETHOPRIM [Suspect]
     Indication: PNEUMOCYSTIS JIROVECI PNEUMONIA
  4. LAMIVUDINE [Concomitant]
     Indication: HEPATITIS B
  5. INTERFERON BETA [Concomitant]
     Indication: HEPATITIS B
  6. PLASMAPHERESIS [Concomitant]
  7. PENTAMIDINE [Concomitant]
     Dosage: 200 MG PER DAY
  8. ADEFOVIR DIPIVOXIL KIT [Concomitant]

REACTIONS (11)
  - ALTERED STATE OF CONSCIOUSNESS [None]
  - BIOPSY LIVER ABNORMAL [None]
  - BLOOD BETA-D-GLUCAN INCREASED [None]
  - FUNGUS SPUTUM TEST POSITIVE [None]
  - HEPATIC ENCEPHALOPATHY [None]
  - HEPATIC NECROSIS [None]
  - HYPOXIA [None]
  - JAUNDICE [None]
  - LIVER DISORDER [None]
  - LUNG DISORDER [None]
  - PNEUMOCYSTIS JIROVECI PNEUMONIA [None]
